FAERS Safety Report 10796676 (Version 1)
Quarter: 2015Q1

REPORT INFORMATION
  Report Type: Spontaneous
  Country: FR (occurrence: FR)
  Receive Date: 20150216
  Receipt Date: 20150216
  Transmission Date: 20150721
  Serious: Yes (Hospitalization)
  Sender: FDA-Public Use
  Company Number: FR-ACTELION-A-CH2015-112637

PATIENT
  Age: 89 Year
  Sex: Male

DRUGS (3)
  1. TRACLEER [Suspect]
     Active Substance: BOSENTAN\BOSENTAN MONOHYDRATE
     Indication: PULMONARY ARTERIAL HYPERTENSION
     Dosage: 62.5 MG, BID
     Route: 048
     Dates: start: 201407, end: 20140919
  2. AMOXICILLIN. [Suspect]
     Active Substance: AMOXICILLIN
     Indication: PRODUCT USED FOR UNKNOWN INDICATION
     Dosage: 1 G, OD
     Route: 048
     Dates: start: 201408
  3. ADCIRCA [Suspect]
     Active Substance: TADALAFIL
     Indication: PULMONARY ARTERIAL HYPERTENSION
     Dosage: UNK
     Route: 048
     Dates: start: 201407, end: 20140919

REACTIONS (10)
  - Jaundice [Recovered/Resolved]
  - Sputum purulent [Unknown]
  - Gamma-glutamyltransferase increased [Recovered/Resolved]
  - Dyspnoea [Unknown]
  - Blood alkaline phosphatase increased [Recovered/Resolved]
  - Lung infection [Unknown]
  - Alanine aminotransferase increased [Recovered/Resolved]
  - Cholestasis [Recovered/Resolved]
  - Aspartate aminotransferase increased [Recovered/Resolved]
  - Productive cough [Unknown]

NARRATIVE: CASE EVENT DATE: 20140917
